FAERS Safety Report 10156533 (Version 3)
Quarter: 2014Q2

REPORT INFORMATION
  Report Type: Report from Study
  Country: BR (occurrence: BR)
  Receive Date: 20140507
  Receipt Date: 20140627
  Transmission Date: 20141212
  Serious: Yes (Life-Threatening)
  Sender: FDA-Public Use
  Company Number: BR-ROCHE-1379519

PATIENT
  Age: 41 Year
  Sex: Female

DRUGS (5)
  1. AVASTIN [Suspect]
     Indication: BREAST CANCER METASTATIC
     Dosage: 14 DAYS INTERVAL
     Route: 065
     Dates: start: 20110215
  2. ZOLEDRONIC ACID [Suspect]
     Indication: BREAST CANCER METASTATIC
     Route: 065
     Dates: start: 20110224
  3. PACLITAXEL [Suspect]
     Indication: BREAST CANCER METASTATIC
     Route: 065
     Dates: start: 20110215
  4. TAMOXIFEN [Concomitant]
  5. DECADRON OPHTHALMIC [Concomitant]
     Dosage: 28 DAYS INTERVAL
     Route: 065
     Dates: start: 20110215

REACTIONS (1)
  - Disease progression [Unknown]
